FAERS Safety Report 19516259 (Version 1)
Quarter: 2021Q3

REPORT INFORMATION
  Report Type: Spontaneous
  Country: US (occurrence: US)
  Receive Date: 20210709
  Receipt Date: 20210709
  Transmission Date: 20211014
  Serious: No
  Sender: FDA-Public Use
  Company Number: US-ASTELLAS-2020US043620

PATIENT
  Age: 91 Year
  Sex: Female

DRUGS (1)
  1. MYRBETRIQ [Suspect]
     Active Substance: MIRABEGRON
     Indication: PRODUCT USED FOR UNKNOWN INDICATION
     Route: 065
     Dates: start: 20201209, end: 20201209

REACTIONS (4)
  - Back pain [Unknown]
  - Drug ineffective [Unknown]
  - Blood pressure increased [Unknown]
  - Cystitis [Unknown]

NARRATIVE: CASE EVENT DATE: 202012
